FAERS Safety Report 5150908-7 (Version None)
Quarter: 2006Q4

REPORT INFORMATION
  Report Type: 
  Country: None (occurrence: None)
  Receive Date: 20061114
  Receipt Date: 20061003
  Transmission Date: 20070319
  Serious: Yes (Hospitalization)
  Sender: FDA-Public Use
  Company Number: JP-BOEHRINGER INGELHEIM PHARMACEUTICALS, INC.-2006-BP-11716YA

PATIENT
  Sex: Male
  Weight: 46.6 kg

DRUGS (4)
  1. HARNAL (TAMSULOSIN) ORODISPERSABLE CR [Suspect]
     Indication: BENIGN PROSTATIC HYPERPLASIA
     Route: 048
     Dates: start: 20060912
  2. CEFZON [Suspect]
     Indication: URINARY TRACT INFECTION
     Route: 048
     Dates: start: 20060912, end: 20060921
  3. BESACOLIN [Concomitant]
     Dates: start: 20060912
  4. LENDORMIN [Concomitant]
     Dates: start: 20060912, end: 20061004

REACTIONS (1)
  - NEUTROPENIA [None]
